FAERS Safety Report 5483132-9 (Version None)
Quarter: 2007Q4

REPORT INFORMATION
  Report Type: 
  Country: None (occurrence: None)
  Receive Date: 20071011
  Receipt Date: 20070925
  Transmission Date: 20080405
  Serious: Yes (Death)
  Sender: FDA-Public Use
  Company Number: MY-MERCK-0709MYS00046

PATIENT
  Age: 42 Year
  Sex: Female

DRUGS (11)
  1. PRIMAXIN [Suspect]
     Indication: SEPSIS
     Route: 065
     Dates: start: 20040501
  2. VANCOMYCIN [Concomitant]
     Indication: SEPSIS
     Route: 065
     Dates: start: 20040501
  3. METHYLPREDNISOLONE [Concomitant]
     Indication: SEPSIS
     Route: 065
     Dates: start: 20040501
  4. CYCLOSPORINE [Concomitant]
     Indication: TRANSPLANT
     Route: 065
     Dates: start: 20070301
  5. TACROLIMUS [Concomitant]
     Indication: TRANSPLANT
     Route: 042
  6. GLOBULIN, IMMUNE [Concomitant]
     Indication: TRANSPLANT
     Route: 042
  7. INFLIXIMAB [Concomitant]
     Indication: TRANSPLANT
     Route: 042
     Dates: start: 20070501
  8. FLUCONAZOLE [Concomitant]
     Indication: FUNGAL INFECTION
     Route: 065
  9. ACYCLOVIR [Concomitant]
     Route: 065
  10. AMPICILLIN SODIUM AND SULBACTAM SODIUM [Concomitant]
     Indication: INFECTION
     Route: 042
  11. AMPHOTERICIN B [Concomitant]
     Route: 042

REACTIONS (4)
  - ACUTE GRAFT VERSUS HOST DISEASE IN SKIN [None]
  - PATHOGEN RESISTANCE [None]
  - RASH MACULAR [None]
  - SEPSIS [None]
